FAERS Safety Report 11628462 (Version 1)
Quarter: 2015Q4

REPORT INFORMATION
  Report Type: Spontaneous
  Country: JP (occurrence: JP)
  Receive Date: 20151014
  Receipt Date: 20151014
  Transmission Date: 20160304
  Serious: Yes (Other)
  Sender: FDA-Public Use
  Company Number: JP-ASTELLAS-2015US037377

PATIENT
  Age: 38 Year
  Sex: Female

DRUGS (2)
  1. TARCEVA [Suspect]
     Active Substance: ERLOTINIB HYDROCHLORIDE
     Indication: LUNG ADENOCARCINOMA
     Dosage: 150 MG, ONCE DAILY (DOSAGE IS UNCERTAIN)
     Route: 048
     Dates: start: 20150129
  2. AVASTIN [Suspect]
     Active Substance: BEVACIZUMAB
     Indication: LUNG ADENOCARCINOMA
     Dosage: 15 MG/KG, EVERY 3 WEEKS (DOSAGE IS UNCERTAIN)
     Route: 041
     Dates: start: 20150224

REACTIONS (1)
  - Amenorrhoea [Not Recovered/Not Resolved]
